FAERS Safety Report 4771415-7 (Version None)
Quarter: 2005Q3

REPORT INFORMATION
  Report Type: 
  Country: None (occurrence: None)
  Receive Date: 20050915
  Receipt Date: 20050902
  Transmission Date: 20060218
  Serious: Yes (Hospitalization)
  Sender: FDA-Public Use
  Company Number: PERC20050040

PATIENT
  Age: 53 Year
  Sex: Female

DRUGS (3)
  1. PERCOCET       325MG                    ENDO [Suspect]
     Indication: BACK PAIN
     Dosage: 1 TAB ONCE PO
     Route: 048
     Dates: start: 20050821, end: 20050821
  2. REQUIP (ROPINIROLE HCL) GSK [Suspect]
     Indication: RESTLESS LEGS SYNDROME
     Dosage: 2 MG DAILY PO
     Route: 048
     Dates: start: 20050801, end: 20050821
  3. CYMBALTA [Concomitant]

REACTIONS (6)
  - CONFUSIONAL STATE [None]
  - DELIRIUM [None]
  - DEPRESSION [None]
  - MEMORY IMPAIRMENT [None]
  - PAIN [None]
  - RESTLESS LEGS SYNDROME [None]
